FAERS Safety Report 8508179-7 (Version None)
Quarter: 2012Q3

REPORT INFORMATION
  Report Type: 
  Country: None (occurrence: None)
  Receive Date: 20120713
  Receipt Date: 20120711
  Transmission Date: 20120928
  Serious: Yes (Other)
  Sender: FDA-Public Use
  Company Number: CA-PFIZER INC-2012166754

PATIENT
  Age: 60 Year
  Sex: Male

DRUGS (5)
  1. METFORMIN [Concomitant]
     Dosage: 1000 MG, UNK
  2. EFFEXOR [Suspect]
     Indication: DIABETIC NEUROPATHY
     Dosage: 75 MG, 1X/DAY
     Dates: start: 20050101, end: 20110101
  3. METFORMIN [Concomitant]
     Indication: DIABETES MELLITUS
     Dosage: 1500 MG, DAILY
     Dates: start: 20030101
  4. EFFEXOR [Suspect]
     Dosage: UNK
     Dates: start: 20110101, end: 20120605
  5. METFORMIN [Concomitant]
     Dosage: 500 MG, UNK

REACTIONS (17)
  - DIARRHOEA [None]
  - TREMOR [None]
  - NAUSEA [None]
  - ASTHENIA [None]
  - DECREASED APPETITE [None]
  - DECREASED ACTIVITY [None]
  - DIZZINESS [None]
  - PARKINSON'S DISEASE [None]
  - GASTROOESOPHAGEAL REFLUX DISEASE [None]
  - ABDOMINAL DISTENSION [None]
  - THIRST [None]
  - VOMITING [None]
  - SOMNOLENCE [None]
  - WITHDRAWAL SYNDROME [None]
  - OFF LABEL USE [None]
  - HYPERTENSION [None]
  - WEIGHT INCREASED [None]
